FAERS Safety Report 7699559-0 (Version None)
Quarter: 2011Q3

REPORT INFORMATION
  Report Type: 
  Country: None (occurrence: None)
  Receive Date: 20110822
  Receipt Date: 20110815
  Transmission Date: 20111222
  Serious: Yes (Death)
  Sender: FDA-Public Use
  Company Number: DE-BRISTOL-MYERS SQUIBB COMPANY-15971773

PATIENT
  Age: 49 Year
  Sex: Female

DRUGS (3)
  1. CISPLATIN [Suspect]
     Indication: LUNG CANCER METASTATIC
  2. PEMETREXED DISODIUM [Suspect]
     Indication: LUNG CANCER METASTATIC
  3. GEFITINIB [Suspect]
     Indication: LUNG CANCER METASTATIC

REACTIONS (2)
  - RESPIRATORY FAILURE [None]
  - NEOPLASM MALIGNANT [None]
